FAERS Safety Report 11064074 (Version 1)
Quarter: 2015Q2

REPORT INFORMATION
  Report Type: Spontaneous
  Country: US (occurrence: US)
  Receive Date: 20150424
  Receipt Date: 20150424
  Transmission Date: 20150821
  Serious: No
  Sender: FDA-Public Use
  Company Number: US-ALKERMES INC.-ALK-2015-004257

PATIENT

DRUGS (1)
  1. VIVITROL [Suspect]
     Active Substance: NALTREXONE
     Indication: PRODUCT USED FOR UNKNOWN INDICATION
     Dosage: 380 MG, QMO
     Route: 030
     Dates: start: 20150211

REACTIONS (7)
  - Injection site reaction [Unknown]
  - Injection site mass [Unknown]
  - Dizziness [Recovered/Resolved]
  - Fatigue [Unknown]
  - Diplopia [Recovered/Resolved]
  - Injection site pain [Unknown]
  - Depression [Unknown]

NARRATIVE: CASE EVENT DATE: 201502
